FAERS Safety Report 7104874-5 (Version None)
Quarter: 2010Q4

REPORT INFORMATION
  Report Type: 
  Country: None (occurrence: None)
  Receive Date: 20101109
  Receipt Date: 20101029
  Transmission Date: 20110411
  Serious: Yes (Hospitalization)
  Sender: FDA-Public Use
  Company Number: 2010EU005701

PATIENT
  Sex: Female

DRUGS (5)
  1. FK463 (MICAFUNGIN) INJECTION [Suspect]
     Indication: ANTIFUNGAL PROPHYLAXIS
     Dosage: IV NOS
     Route: 042
     Dates: start: 20100907, end: 20100927
  2. CELLCEPT (MYCOPHENOLATE MOFETIL) [Concomitant]
  3. ADVAGRAF (TACROLIMUS) CAPSULE MEDROL (METHYLPREDNISOLONE) [Concomitant]
  4. PANTOMED (PANTOPRAZOLE SODIUM) [Concomitant]
  5. MEDROL [Concomitant]

REACTIONS (1)
  - CYTOMEGALOVIRUS INFECTION [None]
